FAERS Safety Report 6074580-7 (Version None)
Quarter: 2009Q1

REPORT INFORMATION
  Report Type: 
  Country: None (occurrence: None)
  Receive Date: 20090206
  Receipt Date: 20090123
  Transmission Date: 20090719
  Serious: Yes (Other)
  Sender: FDA-Public Use
  Company Number: JPI-P-005916

PATIENT
  Age: 42 Year
  Sex: Female

DRUGS (4)
  1. XYREM [Suspect]
     Indication: DRUG USE FOR UNKNOWN INDICATION
     Dosage: 6 GM (3 GM, 2 IN 1 D), ORAL; 8 GM (4 GM, 2 IN 1 D), ORAL;
     Route: 048
     Dates: start: 20070313
  2. XYREM [Suspect]
     Indication: DRUG USE FOR UNKNOWN INDICATION
     Dosage: 6 GM (3 GM, 2 IN 1 D), ORAL; 8 GM (4 GM, 2 IN 1 D), ORAL;
     Route: 048
     Dates: start: 20080919
  3. WARFARIN SODIUM [Suspect]
     Indication: DRUG USE FOR UNKNOWN INDICATION
  4. IBUPROFEN TABLETS [Suspect]
     Indication: DRUG USE FOR UNKNOWN INDICATION

REACTIONS (2)
  - INTERNATIONAL NORMALISED RATIO [None]
  - INTERNATIONAL NORMALISED RATIO INCREASED [None]
